FAERS Safety Report 7223023-6 (Version None)
Quarter: 2011Q1

REPORT INFORMATION
  Report Type: 
  Country: None (occurrence: None)
  Receive Date: 20110112
  Receipt Date: 20110105
  Transmission Date: 20110831
  Serious: Yes (Hospitalization)
  Sender: FDA-Public Use
  Company Number: FR-ABBOTT-11P-056-0695527-00

PATIENT
  Sex: Female

DRUGS (10)
  1. ZECLAR [Suspect]
     Indication: GASTROINTESTINAL DISORDER
  2. SEROPLEX [Concomitant]
     Indication: PRODUCT USED FOR UNKNOWN INDICATION
     Route: 048
  3. AMOXICILLIN [Suspect]
     Indication: GASTROINTESTINAL DISORDER
  4. FOLIC ACID [Concomitant]
     Indication: PRODUCT USED FOR UNKNOWN INDICATION
     Route: 048
  5. ZECLAR [Suspect]
     Indication: HELICOBACTER INFECTION
     Route: 048
     Dates: start: 20101117, end: 20101123
  6. DEPAKENE [Concomitant]
     Indication: PRODUCT USED FOR UNKNOWN INDICATION
     Dosage: 1 TABLET IN AM/0.5 TABLET IN PM
     Route: 048
  7. PROPRANOLOL [Concomitant]
     Indication: PRODUCT USED FOR UNKNOWN INDICATION
     Route: 048
  8. ALDACTONE [Concomitant]
     Indication: PRODUCT USED FOR UNKNOWN INDICATION
     Route: 048
  9. AMOXICILLIN [Suspect]
     Indication: HELICOBACTER INFECTION
     Route: 048
     Dates: start: 20101117, end: 20101123
  10. NEXIUM [Suspect]
     Indication: PRODUCT USED FOR UNKNOWN INDICATION
     Route: 048
     Dates: start: 20101117, end: 20101123

REACTIONS (2)
  - NEUTROPENIA [None]
  - LEUKOPENIA [None]
